FAERS Safety Report 19459505 (Version 2)
Quarter: 2021Q3

REPORT INFORMATION
  Report Type: Spontaneous
  Country: US (occurrence: US)
  Receive Date: 20210624
  Receipt Date: 20210916
  Transmission Date: 20211014
  Serious: Yes (Hospitalization)
  Sender: FDA-Public Use
  Company Number: US-TEVA-2021-US-1924661

PATIENT
  Age: 56 Year
  Sex: Female

DRUGS (2)
  1. GEMCITABINE. [Suspect]
     Active Substance: GEMCITABINE
     Indication: ADENOCARCINOMA PANCREAS
     Dosage: RECEIVED ON DAYS 1, 8 AND 15 OF A 21?DAY CYCLE, FOR 4 CYCLES
     Route: 065
     Dates: start: 201901
  2. ABRAXANE [Concomitant]
     Active Substance: PACLITAXEL
     Indication: ADENOCARCINOMA PANCREAS
     Dosage: RECEIVED ON DAYS 1, 8 AND 15 OF A 21?DAY CYCLE, FOR 4 CYCLES
     Route: 065
     Dates: start: 201901

REACTIONS (3)
  - Necrosis [Recovering/Resolving]
  - Myositis [Recovered/Resolved]
  - Leukopenia [Recovering/Resolving]

NARRATIVE: CASE EVENT DATE: 201904
